FAERS Safety Report 9448945 (Version 2)
Quarter: 2013Q3

REPORT INFORMATION
  Report Type: Report from Study
  Country: US (occurrence: US)
  Receive Date: 20130808
  Receipt Date: 20130830
  Transmission Date: 20140515
  Serious: Yes (Hospitalization, Other)
  Sender: FDA-Public Use
  Company Number: US-ABBOTT-13P-163-1128861-00

PATIENT
  Age: 51 Year
  Sex: Female

DRUGS (3)
  1. HUMIRA [Suspect]
     Indication: CROHN^S DISEASE
     Dosage: DAY 1
     Route: 058
     Dates: start: 20130729, end: 20130729
  2. ASACOL [Concomitant]
     Indication: PRODUCT USED FOR UNKNOWN INDICATION
  3. ASACOL [Concomitant]
     Indication: PAIN

REACTIONS (12)
  - Intestinal stenosis [Recovering/Resolving]
  - Vomiting [Recovering/Resolving]
  - Pain [Recovering/Resolving]
  - Presyncope [Recovering/Resolving]
  - Gastrointestinal oedema [Recovering/Resolving]
  - Cholelithiasis [Recovering/Resolving]
  - Appendicectomy [Recovering/Resolving]
  - Abdominal infection [Recovering/Resolving]
  - Gastrointestinal carcinoma [Unknown]
  - Dysuria [Recovering/Resolving]
  - Painful defaecation [Recovering/Resolving]
  - Diarrhoea [Recovering/Resolving]
